FAERS Safety Report 7638894-9 (Version None)
Quarter: 2011Q3

REPORT INFORMATION
  Report Type: 
  Country: None (occurrence: None)
  Receive Date: 20110721
  Receipt Date: 20110706
  Transmission Date: 20111222
  Serious: Yes (Other)
  Sender: FDA-Public Use
  Company Number: PT11-157-AE

PATIENT
  Age: 86 Year
  Sex: Female
  Weight: 78.4723 kg

DRUGS (1)
  1. FLECAINIDE ACETATE [Suspect]
     Indication: ATRIAL FIBRILLATION
     Dosage: 1 TABLET, Q12H, ORAL
     Route: 048
     Dates: start: 20110608, end: 20110704

REACTIONS (4)
  - SWELLING [None]
  - DRUG HYPERSENSITIVITY [None]
  - VEIN DISORDER [None]
  - LARGE INTESTINAL OBSTRUCTION [None]
